FAERS Safety Report 11570348 (Version 2)
Quarter: 2015Q4

REPORT INFORMATION
  Report Type: Spontaneous
  Country: US (occurrence: US)
  Receive Date: 20150929
  Receipt Date: 20151125
  Transmission Date: 20160304
  Serious: Yes (Death)
  Sender: FDA-Public Use
  Company Number: US-CELGENEUS-USA-2015096172

PATIENT
  Age: 17 Year
  Sex: Male

DRUGS (2)
  1. THALOMID [Suspect]
     Active Substance: THALIDOMIDE
     Indication: ATYPICAL TERATOID/RHABDOID TUMOUR OF CNS
  2. THALOMID [Suspect]
     Active Substance: THALIDOMIDE
     Indication: BRAIN NEOPLASM MALIGNANT
     Dosage: 250 MILLIGRAM
     Route: 048
     Dates: start: 20141210, end: 20150123

REACTIONS (4)
  - Atypical teratoid/rhabdoid tumour of CNS [Fatal]
  - Escherichia sepsis [Fatal]
  - Multi-organ failure [Fatal]
  - Cardiopulmonary failure [Fatal]

NARRATIVE: CASE EVENT DATE: 20150131
